FAERS Safety Report 11511939 (Version 2)
Quarter: 2015Q4

REPORT INFORMATION
  Report Type: Spontaneous
  Country: IT (occurrence: IT)
  Receive Date: 20150916
  Receipt Date: 20151202
  Transmission Date: 20160304
  Serious: Yes (Other)
  Sender: FDA-Public Use
  Company Number: IT-JNJFOC-20150905394

PATIENT
  Age: 55 Year
  Sex: Female
  Weight: 60 kg

DRUGS (4)
  1. LORAZEPAM. [Suspect]
     Active Substance: LORAZEPAM
     Indication: DRUG ABUSE
     Route: 065
     Dates: start: 20150907, end: 20150907
  2. EN [Suspect]
     Active Substance: DELORAZEPAM
     Indication: DRUG ABUSE
     Route: 048
     Dates: start: 20150907, end: 20150907
  3. PEVARYL [Suspect]
     Active Substance: ECONAZOLE NITRATE
     Indication: DRUG ABUSE
     Route: 048
     Dates: start: 20150907, end: 20150907
  4. TACHIPIRINA [Suspect]
     Active Substance: ACETAMINOPHEN
     Indication: DRUG ABUSE
     Dosage: 30 TABLETS
     Route: 048
     Dates: start: 20150907, end: 20150907

REACTIONS (5)
  - Incorrect route of drug administration [Recovered/Resolved]
  - Sluggishness [Recovered/Resolved]
  - Intentional overdose [Recovered/Resolved]
  - Self injurious behaviour [Recovered/Resolved]
  - Vomiting [Recovered/Resolved]

NARRATIVE: CASE EVENT DATE: 20150907
